FAERS Safety Report 5481173-9 (Version None)
Quarter: 2007Q4

REPORT INFORMATION
  Report Type: 
  Country: None (occurrence: None)
  Receive Date: 20071010
  Receipt Date: 20071001
  Transmission Date: 20080405
  Serious: Yes (Hospitalization, Other)
  Sender: FDA-Public Use
  Company Number: PHBS2007JP13221

PATIENT
  Age: 57 Year
  Sex: Male

DRUGS (8)
  1. COMTAN [Suspect]
     Indication: DRUG EFFECT DECREASED
     Dosage: 100 MG, TID
     Route: 048
     Dates: start: 20070719
  2. MENESIT [Suspect]
     Indication: PARKINSON'S DISEASE
     Dosage: 100 MG, 5QD
     Route: 048
     Dates: start: 20070414
  3. FP [Suspect]
     Indication: PARKINSON'S DISEASE
     Dosage: 2.5 MG, TID
     Route: 048
     Dates: start: 20070614
  4. RIVOTRIL [Suspect]
     Indication: PARKINSON'S DISEASE
     Dosage: 2 MG, TID
     Route: 048
     Dates: start: 20070414
  5. REQUIP [Suspect]
     Indication: PARKINSON'S DISEASE
     Dosage: 2 MG, TID
     Route: 048
     Dates: start: 20070414
  6. ARTANE [Suspect]
     Indication: PARKINSON'S DISEASE
     Dosage: 2 MG, TID
     Route: 048
     Dates: start: 20070414
  7. TERNELIN [Concomitant]
     Indication: PARKINSON'S DISEASE
     Dosage: 3 MG/D
     Route: 048
     Dates: start: 20070414
  8. MILMAG [Concomitant]
     Indication: CONSTIPATION
     Dosage: 1050 MG/D
     Route: 048
     Dates: start: 20070414

REACTIONS (4)
  - ABNORMAL BEHAVIOUR [None]
  - INCOHERENT [None]
  - MENTAL IMPAIRMENT [None]
  - PSYCHIATRIC SYMPTOM [None]
